FAERS Safety Report 10231267 (Version 1)
Quarter: 2014Q2

REPORT INFORMATION
  Report Type: Spontaneous
  Country: US (occurrence: US)
  Receive Date: 20140611
  Receipt Date: 20140611
  Transmission Date: 20141212
  Serious: Yes (Hospitalization)
  Sender: FDA-Public Use
  Company Number: US-GLAXOSMITHKLINE-A1075912A

PATIENT
  Age: 53 Year
  Sex: Female

DRUGS (9)
  1. ADVAIR [Suspect]
     Indication: CHRONIC OBSTRUCTIVE PULMONARY DISEASE
     Dosage: 1PUFF TWICE PER DAY
     Route: 055
     Dates: start: 2009
  2. ZOFRAN [Suspect]
     Indication: PROPHYLAXIS OF NAUSEA AND VOMITING
     Route: 042
     Dates: start: 201405
  3. OXYGEN [Suspect]
     Indication: PRODUCT USED FOR UNKNOWN INDICATION
  4. REVERSAL AGENT [Suspect]
     Indication: PRODUCT USED FOR UNKNOWN INDICATION
  5. LANTUS [Concomitant]
  6. METFORMIN [Concomitant]
  7. PRO-AIR [Concomitant]
  8. PROVIGIL [Concomitant]
  9. LINZESS [Concomitant]

REACTIONS (9)
  - Hernia repair [Recovered/Resolved]
  - Colectomy [Recovered/Resolved]
  - Abdominal hernia [Recovering/Resolving]
  - Abdominal pain upper [Recovering/Resolving]
  - Pruritus [Recovering/Resolving]
  - Pharyngeal oedema [Recovering/Resolving]
  - Drug hypersensitivity [Recovering/Resolving]
  - Gastric banding [Recovered/Resolved]
  - Procedural complication [Unknown]
